FAERS Safety Report 7968268-2 (Version None)
Quarter: 2011Q4

REPORT INFORMATION
  Report Type: 
  Country: None (occurrence: None)
  Receive Date: 20111209
  Receipt Date: 20111206
  Transmission Date: 20120403
  Serious: Yes (Other)
  Sender: FDA-Public Use
  Company Number: PHHY2011US69629

PATIENT
  Sex: Female
  Weight: 9.26 kg

DRUGS (2)
  1. EXJADE [Suspect]
     Indication: SIDEROBLASTIC ANAEMIA
     Dosage: 125 MG, DAILY
     Route: 048
     Dates: start: 20110307, end: 20110419
  2. EXJADE [Suspect]
     Dosage: 125 MG, DAILY
     Route: 048

REACTIONS (1)
  - CLOSTRIDIUM TEST POSITIVE [None]
